FAERS Safety Report 8462672-4 (Version None)
Quarter: 2012Q2

REPORT INFORMATION
  Report Type: 
  Country: None (occurrence: None)
  Receive Date: 20120625
  Receipt Date: 20120625
  Transmission Date: 20120825
  Serious: Yes (Death, Other)
  Sender: FDA-Public Use
  Company Number: FR-PFIZER INC-A208252

PATIENT
  Age: 43 Year
  Sex: Male

DRUGS (6)
  1. SILDENAFIL [Suspect]
     Indication: ERECTILE DYSFUNCTION
  2. YOHIMBINE [Concomitant]
  3. NITROGLYCERIN [Concomitant]
  4. TRIMETAZIDINE [Concomitant]
  5. BROMAZEPAM [Concomitant]
  6. VERAPAMIL HYDROCHLORIDE [Interacting]
     Indication: ILL-DEFINED DISORDER

REACTIONS (10)
  - ACUTE MYOCARDIAL INFARCTION [None]
  - AORTIC ARTERIOSCLEROSIS [None]
  - ARRHYTHMIA [None]
  - CARDIOVASCULAR DISORDER [None]
  - DRUG INTERACTION [None]
  - CARDIOMEGALY [None]
  - CORONARY ARTERY OCCLUSION [None]
  - HYPOTENSION [None]
  - MYOCARDIAL INFARCTION [None]
  - PULMONARY OEDEMA [None]
